FAERS Safety Report 13297980 (Version 3)
Quarter: 2019Q4

REPORT INFORMATION
  Report Type: Spontaneous
  Country: US (occurrence: US)
  Receive Date: 20170306
  Receipt Date: 20191004
  Transmission Date: 20200122
  Serious: Yes (Death, Other)
  Sender: FDA-Public Use
  Company Number: US-ELI_LILLY_AND_COMPANY-US201702011478

PATIENT
  Sex: Male

DRUGS (5)
  1. TESTOSTERONE. [Concomitant]
     Active Substance: TESTOSTERONE
     Indication: ASTHENIA
     Dosage: 200 MG, 2/M
     Route: 065
     Dates: start: 20130314, end: 20130415
  2. CIALIS [Suspect]
     Active Substance: TADALAFIL
     Indication: ERECTILE DYSFUNCTION
     Dosage: 5 MG, DAILY
     Route: 065
     Dates: start: 20130116, end: 20130501
  3. TESTOSTERONE. [Concomitant]
     Active Substance: TESTOSTERONE
     Indication: BLOOD TESTOSTERONE DECREASED
     Dosage: 4 DOSAGE FORM, MONTHLY (1/M)
     Route: 065
     Dates: start: 20130530, end: 20140623
  4. VIAGRA [Suspect]
     Active Substance: SILDENAFIL CITRATE
     Indication: ERECTILE DYSFUNCTION
     Dosage: 100 MG, PRN
     Route: 065
     Dates: start: 20130605, end: 20130925
  5. CIALIS [Suspect]
     Active Substance: TADALAFIL
     Indication: DYSURIA
     Dosage: 20 MG, PRN
     Route: 065
     Dates: start: 20130927, end: 20141023

REACTIONS (2)
  - Neuroendocrine carcinoma metastatic [Fatal]
  - Neuroendocrine carcinoma of the skin [Unknown]

NARRATIVE: CASE EVENT DATE: 201309
